FAERS Safety Report 5095868-2 (Version None)
Quarter: 2006Q3

REPORT INFORMATION
  Report Type: 
  Country: None (occurrence: None)
  Receive Date: 20060726
  Receipt Date: 20060525
  Transmission Date: 20061208
  Serious: No
  Sender: FDA-Public Use
  Company Number: 012286

PATIENT
  Age: 50 Year
  Sex: Male

DRUGS (2)
  1. PRIALT [Suspect]
     Indication: POST LAMINECTOMY SYNDROME
     Dosage: 0.05 UG, ONCE/HOUR, INTRATHECAL
     Route: 037
     Dates: start: 20060511
  2. DILAUDID [Concomitant]

REACTIONS (1)
  - RASH GENERALISED [None]
